FAERS Safety Report 9781402 (Version 1)
Quarter: 2013Q4

REPORT INFORMATION
  Report Type: Spontaneous
  Country: FR (occurrence: FR)
  Receive Date: 20131224
  Receipt Date: 20131224
  Transmission Date: 20140711
  Serious: Yes (Life-Threatening)
  Sender: FDA-Public Use
  Company Number: FR-JNJFOC-20131214611

PATIENT
  Age: 67 Year
  Sex: Male

DRUGS (15)
  1. REMICADE [Suspect]
     Indication: BEHCET^S SYNDROME
     Route: 042
     Dates: start: 20070606, end: 20090529
  2. HUMIRA [Suspect]
     Indication: BEHCET^S SYNDROME
     Route: 058
     Dates: start: 20090724, end: 20130206
  3. CORTANCYL [Suspect]
     Indication: BEHCET^S SYNDROME
     Route: 048
     Dates: end: 20130307
  4. CORTANCYL [Suspect]
     Indication: BEHCET^S SYNDROME
     Dosage: FROM 30MG DAILY TO 5 MG DAILY
     Route: 048
     Dates: start: 201005, end: 201211
  5. CORTANCYL [Suspect]
     Indication: BEHCET^S SYNDROME
     Dosage: 18 MG DAILY TO 10 MG
     Route: 048
     Dates: start: 200906, end: 201003
  6. CORTANCYL [Suspect]
     Indication: BEHCET^S SYNDROME
     Route: 048
  7. CORTANCYL [Suspect]
     Indication: BEHCET^S SYNDROME
     Route: 048
     Dates: start: 200606
  8. CORTANCYL [Suspect]
     Indication: BEHCET^S SYNDROME
     Route: 048
     Dates: start: 201003, end: 201205
  9. CORTANCYL [Suspect]
     Indication: BEHCET^S SYNDROME
     Route: 048
     Dates: start: 200903, end: 200906
  10. CORTANCYL [Suspect]
     Indication: BEHCET^S SYNDROME
     Route: 048
     Dates: start: 200809, end: 200812
  11. CORTANCYL [Suspect]
     Indication: BEHCET^S SYNDROME
     Route: 048
     Dates: start: 200801, end: 200809
  12. CORTANCYL [Suspect]
     Indication: BEHCET^S SYNDROME
     Dosage: DECREASE OF 2.5 MG EVERY 15 DAYS
     Route: 048
     Dates: start: 200711, end: 200801
  13. CORTANCYL [Suspect]
     Indication: BEHCET^S SYNDROME
     Route: 048
     Dates: start: 200709, end: 200711
  14. CORTANCYL [Suspect]
     Indication: BEHCET^S SYNDROME
     Route: 048
     Dates: start: 200612, end: 200709
  15. METHOTREXATE [Suspect]
     Indication: PRODUCT USED FOR UNKNOWN INDICATION
     Route: 048
     Dates: start: 20100921, end: 20110316

REACTIONS (2)
  - Transitional cell carcinoma [Unknown]
  - Off label use [Unknown]
